FAERS Safety Report 5642545-2 (Version None)
Quarter: 2008Q1

REPORT INFORMATION
  Report Type: 
  Country: None (occurrence: None)
  Receive Date: 20080227
  Receipt Date: 20080227
  Transmission Date: 20080703
  Serious: No
  Sender: FDA-Public Use
  Company Number: None

PATIENT
  Sex: Male
  Weight: 76.2043 kg

DRUGS (1)
  1. SIMVASTATIN 80MG 1 PO QD [Suspect]
     Indication: HYPERCHOLESTEROLAEMIA
     Dosage: 80 MG 1 PO
     Route: 048
     Dates: start: 20061114, end: 20070216

REACTIONS (3)
  - ABDOMINAL DISTENSION [None]
  - ABDOMINAL PAIN [None]
  - DIARRHOEA [None]
